FAERS Safety Report 7338947-9 (Version None)
Quarter: 2011Q1

REPORT INFORMATION
  Report Type: 
  Country: None (occurrence: None)
  Receive Date: 20110308
  Receipt Date: 20110303
  Transmission Date: 20110831
  Serious: Yes (Other)
  Sender: FDA-Public Use
  Company Number: US-ABBOTT-11P-163-0708173-00

PATIENT
  Sex: Female

DRUGS (4)
  1. LISINOPRIL [Concomitant]
     Indication: HYPERTENSION
     Dosage: 20/12.5 MG
  2. HUMIRA [Suspect]
     Route: 058
     Dates: start: 20110226
  3. HUMIRA [Suspect]
     Indication: PSORIASIS
     Route: 058
     Dates: start: 20090101, end: 20100101
  4. THYROID TAB [Concomitant]
     Indication: THYROIDECTOMY
     Dosage: 90MG IN AM; 30MG AT NIGHT.
     Dates: start: 20100101

REACTIONS (4)
  - THYROIDECTOMY [None]
  - WHITE BLOOD CELL COUNT INCREASED [None]
  - GOITRE [None]
  - THYROID CANCER [None]
